FAERS Safety Report 16995306 (Version 25)
Quarter: 2025Q1

REPORT INFORMATION
  Report Type: Report from Study
  Country: US (occurrence: US)
  Receive Date: 20191105
  Receipt Date: 20250116
  Transmission Date: 20250409
  Serious: Yes (Other)
  Sender: TAKEDA
  Company Number: US-SHIRE-US201936135

PATIENT
  Age: 69 Year
  Sex: Female
  Weight: 70 kg

DRUGS (48)
  1. HUMAN IMMUNOGLOBULIN G [Suspect]
     Active Substance: HUMAN IMMUNOGLOBULIN G
     Indication: Alpha-1 antitrypsin deficiency
     Dosage: 12 GRAM, Q2WEEKS
     Dates: start: 20180911
  2. HUMAN IMMUNOGLOBULIN G [Suspect]
     Active Substance: HUMAN IMMUNOGLOBULIN G
     Indication: Immunodeficiency common variable
     Dosage: 12 GRAM, Q2WEEKS
     Dates: start: 20180917
  3. SYMBICORT [Suspect]
     Active Substance: BUDESONIDE\FORMOTEROL FUMARATE DIHYDRATE
     Indication: Product used for unknown indication
  4. FAMOTIDINE [Suspect]
     Active Substance: FAMOTIDINE
     Indication: Product used for unknown indication
  5. NYSTATIN [Suspect]
     Active Substance: NYSTATIN
     Indication: Product used for unknown indication
  6. ACETAMINOPHEN [Concomitant]
     Active Substance: ACETAMINOPHEN
  7. DIPHENHYDRAMINE [Concomitant]
     Active Substance: DIPHENHYDRAMINE
  8. LORATADINE [Concomitant]
     Active Substance: LORATADINE
  9. EPINEPHRINE [Concomitant]
     Active Substance: EPINEPHRINE
  10. NASACORT [Concomitant]
     Active Substance: TRIAMCINOLONE ACETONIDE
  11. SOMA [Concomitant]
     Active Substance: CARISOPRODOL
  12. TYLENOL ARTHRITIS PAIN [Concomitant]
     Active Substance: ACETAMINOPHEN
  13. NATURE-THROID [Concomitant]
     Active Substance: THYROID, PORCINE
  14. PREMARIN [Concomitant]
     Active Substance: ESTROGENS, CONJUGATED
  15. ASMANEX [Concomitant]
     Active Substance: MOMETASONE FUROATE
  16. LOVASTATIN [Concomitant]
     Active Substance: LOVASTATIN
  17. CLOBETASOL [Concomitant]
     Active Substance: CLOBETASOL
  18. HALOBETASOL [Concomitant]
     Active Substance: HALOBETASOL
  19. VENTOLIN [Concomitant]
     Active Substance: ALBUTEROL SULFATE
  20. CITALOPRAM [Concomitant]
     Active Substance: CITALOPRAM
  21. ALPRAZOLAM [Concomitant]
     Active Substance: ALPRAZOLAM
  22. ALBUTEROL SULFATE [Concomitant]
     Active Substance: ALBUTEROL SULFATE
  23. CYCLOBENZAPRINE [Concomitant]
     Active Substance: CYCLOBENZAPRINE
  24. BENZOYL PEROXIDE\CLINDAMYCIN PHOSPHATE [Concomitant]
     Active Substance: BENZOYL PEROXIDE\CLINDAMYCIN PHOSPHATE
  25. DICLOFENAC [Concomitant]
     Active Substance: DICLOFENAC
  26. Omega [Concomitant]
  27. LEVOFLOXACIN [Concomitant]
     Active Substance: LEVOFLOXACIN
  28. CALCIUM\CHOLECALCIFEROL [Concomitant]
     Active Substance: CALCIUM\CHOLECALCIFEROL
  29. MONTELUKAST [Concomitant]
     Active Substance: MONTELUKAST
  30. COENZYME Q10 [Concomitant]
     Active Substance: DIETARY SUPPLEMENT\UBIDECARENONE
  31. MUPIROCIN [Concomitant]
     Active Substance: MUPIROCIN
  32. THYROID [Concomitant]
     Active Substance: LEVOTHYROXINE\LIOTHYRONINE
  33. HALOBETASOL PROPIONATE [Concomitant]
     Active Substance: HALOBETASOL PROPIONATE
  34. ALBUTEROL SULFATE [Concomitant]
     Active Substance: ALBUTEROL SULFATE
  35. CYCLOBENZAPRINE HYDROCHLORIDE [Concomitant]
     Active Substance: CYCLOBENZAPRINE HYDROCHLORIDE
  36. DICLOFENAC SODIUM [Concomitant]
     Active Substance: DICLOFENAC SODIUM
  37. MONTELUKAST SODIUM [Concomitant]
     Active Substance: MONTELUKAST SODIUM
  38. EPIPEN [Concomitant]
     Active Substance: EPINEPHRINE
  39. XOLAIR [Concomitant]
     Active Substance: OMALIZUMAB
     Indication: Gastroenteritis viral
  40. XOLAIR [Concomitant]
     Active Substance: OMALIZUMAB
     Indication: Respiratory tract infection
  41. ZITHROMAX [Concomitant]
     Active Substance: AZITHROMYCIN DIHYDRATE
     Indication: Respiratory tract infection
  42. PREDNISONE [Concomitant]
     Active Substance: PREDNISONE
     Indication: Respiratory tract infection
  43. AZITHROMYCIN [Concomitant]
     Active Substance: AZITHROMYCIN
  44. AMLODIPINE BESYLATE [Concomitant]
     Active Substance: AMLODIPINE BESYLATE
  45. GABAPENTIN [Concomitant]
     Active Substance: GABAPENTIN
  46. NEURONTIN [Concomitant]
     Active Substance: GABAPENTIN
  47. FLOVENT HFA [Concomitant]
     Active Substance: FLUTICASONE PROPIONATE
  48. DIPHENHYDRAMINE HYDROCHLORIDE [Concomitant]
     Active Substance: DIPHENHYDRAMINE HYDROCHLORIDE

REACTIONS (19)
  - Respiratory tract infection [Recovered/Resolved]
  - Pneumonia bacterial [Unknown]
  - Device breakage [Unknown]
  - Lower respiratory tract infection viral [Recovering/Resolving]
  - Gastroenteritis viral [Not Recovered/Not Resolved]
  - Nasopharyngitis [Unknown]
  - Flatulence [Recovering/Resolving]
  - Drug hypersensitivity [Unknown]
  - Product use in unapproved indication [Unknown]
  - Product dose omission issue [Unknown]
  - COVID-19 [Unknown]
  - Urinary tract infection [Unknown]
  - Drug eruption [Unknown]
  - Upper respiratory tract infection [Unknown]
  - Osteoporosis [Unknown]
  - Fungal infection [Unknown]
  - Asthma [Recovering/Resolving]
  - Rash [Unknown]
  - Nausea [Recovering/Resolving]

NARRATIVE: CASE EVENT DATE: 20180911
